FAERS Safety Report 16482944 (Version 1)
Quarter: 2019Q2

REPORT INFORMATION
  Report Type: Spontaneous
  Country: DE (occurrence: DE)
  Receive Date: 20190627
  Receipt Date: 20190627
  Transmission Date: 20190711
  Serious: Yes (Other)
  Sender: FDA-Public Use
  Company Number: DE-ROCHE-2344432

PATIENT
  Age: 29 Year
  Sex: Female

DRUGS (4)
  1. OLAPARIB. [Concomitant]
     Active Substance: OLAPARIB
  2. CAPECITABINE. [Suspect]
     Active Substance: CAPECITABINE
     Indication: BREAST CANCER
     Route: 048
     Dates: start: 201709, end: 201803
  3. AVASTIN [Suspect]
     Active Substance: BEVACIZUMAB
     Indication: BREAST CANCER
     Route: 065
     Dates: start: 201709, end: 201803
  4. ERIBULIN [Concomitant]
     Active Substance: ERIBULIN

REACTIONS (2)
  - Recurrent cancer [Unknown]
  - Anaemia [Unknown]

NARRATIVE: CASE EVENT DATE: 2018
